FAERS Safety Report 9379098 (Version 4)
Quarter: 2013Q4

REPORT INFORMATION
  Report Type: Report from Study
  Country: CA (occurrence: CA)
  Receive Date: 20130702
  Receipt Date: 20131011
  Transmission Date: 20140711
  Serious: Yes (Death, Other)
  Sender: FDA-Public Use
  Company Number: PHHY2013CA067882

PATIENT
  Age: 75 Year
  Sex: Male

DRUGS (3)
  1. ZOMETA [Suspect]
     Indication: LUNG NEOPLASM MALIGNANT
     Dosage: 3 MG, EVERY 4 WEEKS
     Route: 042
     Dates: start: 20130528
  2. ZOMETA [Suspect]
     Dosage: 3 MG, EVERY 4 WEEKS
     Route: 042
     Dates: end: 20130820
  3. RADIATION [Concomitant]
     Indication: NERVOUS SYSTEM DISORDER
     Dosage: UNK UKN, UNK
     Dates: end: 20130620

REACTIONS (5)
  - Death [Fatal]
  - Ocular icterus [Unknown]
  - Weight decreased [Unknown]
  - Decreased appetite [Unknown]
  - Diarrhoea [Unknown]
